FAERS Safety Report 9524223 (Version 1)
Quarter: 2013Q1

REPORT INFORMATION
  Report Type: Spontaneous
  Country: US (occurrence: None)
  Receive Date: 20130305
  Receipt Date: 20130305
  Transmission Date: 20140127
  Serious: Yes (Other)
  Sender: FDA-Public Use
  Company Number: 163-21880-12031066

PATIENT
  Age: 75 Year
  Sex: Male
  Weight: 83.92 kg

DRUGS (11)
  1. REVLIMID (LENALIDOMIDE) (25 MILLIGRAM, CAPSULES) [Suspect]
     Indication: PLASMA CELL MYELOMA
     Dosage: 25 MG, QD X 21 DAYS, WITH 7 DAYS OFF PO.
     Dates: start: 20120130
  2. ASA (ACETYLSALICYLIC ACID) UNKNOWN) [Concomitant]
  3. GLIMEPIRIDE (GLIMEPIRIDE) (UNKNOWN) [Concomitant]
  4. METOPROLOL (METOPROLOL) (UNKNOWN) [Concomitant]
  5. LISINOPRIL (LISINOPRIL) (UNKNOWN) [Concomitant]
  6. PLAVIX (CLOPIDOGREL SULFATE) (UNKNOWN) [Concomitant]
  7. TERAZOZIN (TERAZOSIN HYDROCHLORIDE) (UNKNOWN) [Concomitant]
  8. JALYN (DUTAS-T) (UNKNOWN) [Concomitant]
  9. ASPIRIN (ACETYSALICYLIC ACID) (UNKNOWN) [Concomitant]
  10. IMODIUM (LOPERAMIDE HYDROCHLORIDE) (UNKNOWN) [Concomitant]
  11. DULCOAX (BISACODYL) (UNKNOWN) [Concomitant]

REACTIONS (6)
  - Hypersensitivity [None]
  - Diarrhoea [None]
  - Constipation [None]
  - Fatigue [None]
  - Nausea [None]
  - Abdominal discomfort [None]
